FAERS Safety Report 9633057 (Version 1)
Quarter: 2013Q4

REPORT INFORMATION
  Report Type: Report from Study
  Country: BR (occurrence: BR)
  Receive Date: 20131018
  Receipt Date: 20131018
  Transmission Date: 20140711
  Serious: Yes (Other)
  Sender: FDA-Public Use
  Company Number: BR-ROCHE-1288759

PATIENT
  Sex: Male
  Weight: 85.08 kg

DRUGS (7)
  1. XOLAIR [Suspect]
     Indication: ASTHMA
     Route: 065
  2. ALENIA (BRAZIL) [Concomitant]
  3. BUSONID [Concomitant]
  4. MICARDIS [Concomitant]
     Dosage: 80/25
     Route: 065
  5. APRESOLINA [Concomitant]
  6. AMLODIPINE [Concomitant]
  7. APRAZ [Concomitant]

REACTIONS (11)
  - Blood pressure abnormal [Recovering/Resolving]
  - Dyspnoea [Recovering/Resolving]
  - Blood pressure fluctuation [Recovering/Resolving]
  - Anosmia [Recovering/Resolving]
  - Ageusia [Recovering/Resolving]
  - Dysphonia [Recovering/Resolving]
  - Agitation [Recovering/Resolving]
  - Nervousness [Recovering/Resolving]
  - Fatigue [Recovering/Resolving]
  - Insomnia [Recovering/Resolving]
  - Weight increased [Recovering/Resolving]
